FAERS Safety Report 8077143-7 (Version None)
Quarter: 2012Q1

REPORT INFORMATION
  Report Type: 
  Country: None (occurrence: None)
  Receive Date: 20120127
  Receipt Date: 20120124
  Transmission Date: 20120608
  Serious: Yes (Death, Hospitalization)
  Sender: FDA-Public Use
  Company Number: PHEH2011US009487

PATIENT
  Sex: Female

DRUGS (1)
  1. EXJADE [Suspect]
     Indication: MYELODYSPLASTIC SYNDROME UNCLASSIFIABLE
     Dosage: 2000 MG, DAILY
     Route: 048
     Dates: start: 20090310, end: 20111021

REACTIONS (7)
  - PYREXIA [None]
  - NEOPLASM PROGRESSION [None]
  - NEOPLASM MALIGNANT [None]
  - UROSEPSIS [None]
  - FALL [None]
  - BLOOD CREATININE INCREASED [None]
  - MENTAL DISORDER [None]
